FAERS Safety Report 4991107-9 (Version None)
Quarter: 2006Q2

REPORT INFORMATION
  Report Type: 
  Country: None (occurrence: None)
  Receive Date: 20060428
  Receipt Date: 20060421
  Transmission Date: 20061013
  Serious: Yes (Life-Threatening, Other)
  Sender: FDA-Public Use
  Company Number: 200610410GDS

PATIENT
  Age: 73 Year
  Sex: Female

DRUGS (16)
  1. AVELOX [Suspect]
     Indication: PNEUMONIA
     Dosage: 400 MG, TOTAL DAILY; ORAL
     Route: 048
     Dates: start: 20030809, end: 20030813
  2. TEQUIN [Suspect]
     Indication: PNEUMONIA
     Dosage: 400 MG, TOTAL DAILY, ORAL
     Route: 048
     Dates: start: 20030802, end: 20030808
  3. ADALAT [Concomitant]
  4. ATROVENT [Concomitant]
  5. COMBIVENT [Concomitant]
  6. FLOVENT [Concomitant]
  7. FUROSEMIDE [Concomitant]
  8. GLICLAZIDE [Concomitant]
  9. INSULIN [Concomitant]
  10. K-DUR 10 [Concomitant]
  11. LIPITOR [Concomitant]
  12. NICOTINE [Concomitant]
  13. PREDNISONE TAB [Concomitant]
  14. TYLENOL (CAPLET) [Concomitant]
  15. VALSARTAN [Concomitant]
  16. VENTOLIN [Concomitant]

REACTIONS (2)
  - HYPERGLYCAEMIA [None]
  - HYPOGLYCAEMIA [None]
